FAERS Safety Report 5670913-1 (Version None)
Quarter: 2008Q1

REPORT INFORMATION
  Report Type: 
  Country: None (occurrence: None)
  Receive Date: 20080318
  Receipt Date: 20080313
  Transmission Date: 20080703
  Serious: Yes (Hospitalization)
  Sender: FDA-Public Use
  Company Number: B0508896A

PATIENT
  Age: 73 Year
  Sex: Male

DRUGS (5)
  1. ESKAZOLE [Suspect]
     Indication: ECHINOCOCCIASIS
     Dosage: 200MG THREE TIMES PER DAY
     Route: 048
     Dates: start: 20080124, end: 20080211
  2. GLYCYRON [Concomitant]
     Route: 048
  3. URSO 250 [Concomitant]
     Dosage: 300MG PER DAY
     Route: 048
  4. GASLON N [Concomitant]
     Dosage: 4MG PER DAY
     Route: 048
  5. HARNAL [Concomitant]
     Dosage: .2MG PER DAY
     Route: 048

REACTIONS (4)
  - ALOPECIA [None]
  - PANCYTOPENIA [None]
  - RED BLOOD CELL COUNT DECREASED [None]
  - WHITE BLOOD CELL COUNT DECREASED [None]
